FAERS Safety Report 4877253-9 (Version None)
Quarter: 2006Q1

REPORT INFORMATION
  Report Type: 
  Country: None (occurrence: None)
  Receive Date: 20060109
  Receipt Date: 20060109
  Transmission Date: 20060701
  Serious: No
  Sender: FDA-Public Use
  Company Number: None

PATIENT
  Age: 82 Year
  Sex: Female
  Weight: 58.514 kg

DRUGS (4)
  1. PERCOCET [Suspect]
     Indication: BACK PAIN
     Dosage: 5/325 ONE BID
  2. LORAZEPAM [Concomitant]
  3. ZANTAC [Concomitant]
  4. BENTYL [Concomitant]

REACTIONS (4)
  - DIZZINESS [None]
  - MALAISE [None]
  - PHARMACEUTICAL PRODUCT COMPLAINT [None]
  - VISION BLURRED [None]
